FAERS Safety Report 24459083 (Version 1)
Quarter: 2024Q4

REPORT INFORMATION
  Report Type: Spontaneous
  Country: SE (occurrence: SE)
  Receive Date: 20241018
  Receipt Date: 20241018
  Transmission Date: 20250114
  Serious: Yes (Other)
  Sender: ACCORD
  Company Number: None

PATIENT
  Age: 12 Year
  Sex: Male

DRUGS (4)
  1. MONTELUKAST [Suspect]
     Active Substance: MONTELUKAST
     Indication: Seasonal allergy
     Dosage: 1X1. 4 OR 5 MG.
     Dates: start: 2016, end: 2023
  2. MOMETASONE [Concomitant]
     Active Substance: MOMETASONE
     Dates: start: 2022, end: 2024
  3. LORATADINE [Concomitant]
     Active Substance: LORATADINE
     Dates: start: 2022, end: 2024
  4. BUDESONIDE [Concomitant]
     Active Substance: BUDESONIDE
     Dates: start: 2023

REACTIONS (3)
  - Self-destructive behaviour [Recovered/Resolved]
  - Psychiatric symptom [Recovered/Resolved]
  - Condition aggravated [Recovered/Resolved]
